FAERS Safety Report 8585669 (Version 2)
Quarter: 2013Q2

REPORT INFORMATION
  Report Type: Spontaneous
  Country: US (occurrence: US)
  Receive Date: 20120530
  Receipt Date: 20130530
  Transmission Date: 20140414
  Serious: No
  Sender: FDA-Public Use
  Company Number: US-GLAXOSMITHKLINE-A0967030A

PATIENT
  Age: 68 Year
  Sex: Male

DRUGS (5)
  1. FLOLAN [Suspect]
     Indication: PULMONARY ARTERIAL HYPERTENSION
     Route: 042
     Dates: start: 20100302
  2. OXYGEN [Suspect]
     Indication: PRODUCT USED FOR UNKNOWN INDICATION
  3. ASPIRIN [Concomitant]
     Dosage: 81MG PER DAY
  4. TRACLEER [Concomitant]
     Dosage: 125MG TWICE PER DAY
  5. ADCIRCA [Concomitant]
     Dosage: 40MG PER DAY

REACTIONS (7)
  - Epistaxis [Unknown]
  - Abdominal pain [Unknown]
  - Abdominal discomfort [Unknown]
  - Abdominal distension [Unknown]
  - Decreased appetite [Unknown]
  - Platelet count decreased [Unknown]
  - Nasal discomfort [Unknown]
